FAERS Safety Report 5536976-9 (Version None)
Quarter: 2007Q4

REPORT INFORMATION
  Report Type: 
  Country: None (occurrence: None)
  Receive Date: 20071207
  Receipt Date: 20071129
  Transmission Date: 20080405
  Serious: Yes (Hospitalization, Other)
  Sender: FDA-Public Use
  Company Number: GB-JNJFOC-20070904843

PATIENT
  Sex: Male
  Weight: 89 kg

DRUGS (6)
  1. REMICADE [Suspect]
     Indication: SERONEGATIVE ARTHRITIS
     Route: 042
  2. METHOTREXATE [Concomitant]
  3. PREDNISONE TAB [Concomitant]
  4. ARCOXIA [Concomitant]
  5. FOSAMAX [Concomitant]
  6. SALAZOPYRIN [Concomitant]

REACTIONS (1)
  - SEMINOMA [None]
